FAERS Safety Report 4730280-4 (Version None)
Quarter: 2005Q3

REPORT INFORMATION
  Report Type: 
  Country: None (occurrence: None)
  Receive Date: 20050729
  Receipt Date: 20050729
  Transmission Date: 20060218
  Serious: Yes (Other)
  Sender: FDA-Public Use
  Company Number: None

PATIENT
  Age: 68 Year
  Sex: Male
  Weight: 115.6672 kg

DRUGS (3)
  1. PREVACID [Suspect]
     Indication: BARRETT'S OESOPHAGUS
     Dosage: 30 MG DAILY INTRAVENOUS
     Route: 042
  2. NEXIUM [Suspect]
     Dosage: 40 MG DAILY ORAL
     Route: 048
  3. PRILOSEC [Concomitant]

REACTIONS (1)
  - DRUG EFFECT DECREASED [None]
